FAERS Safety Report 20552141 (Version 1)
Quarter: 2022Q1

REPORT INFORMATION
  Report Type: Spontaneous
  Country: US (occurrence: US)
  Receive Date: 20220304
  Receipt Date: 20220304
  Transmission Date: 20220423
  Serious: Yes (Other)
  Sender: FDA-Public Use
  Company Number: US-GLAXOSMITHKLINE-US2022GSK040637

PATIENT
  Sex: Female

DRUGS (4)
  1. RANITIDINE [Suspect]
     Active Substance: RANITIDINE
     Dosage: UNKNOWN AT THIS TIME BOTH
     Route: 065
     Dates: start: 201001, end: 201901
  2. RANITIDINE [Suspect]
     Active Substance: RANITIDINE
     Dosage: UNKNOWN AT THIS TIME BOTH
     Route: 065
     Dates: start: 201001, end: 201901
  3. RANITIDINE [Suspect]
     Active Substance: RANITIDINE
     Dosage: UNKNOWN AT THIS TIME BOTH
     Route: 065
     Dates: start: 201001, end: 201901
  4. RANITIDINE [Suspect]
     Active Substance: RANITIDINE
     Dosage: UNKNOWN AT THIS TIME BOTH
     Route: 065
     Dates: start: 201001, end: 201901

REACTIONS (1)
  - Breast cancer [Unknown]
